FAERS Safety Report 12579528 (Version 1)
Quarter: 2016Q3

REPORT INFORMATION
  Report Type: Spontaneous
  Country: CN (occurrence: CN)
  Receive Date: 20160721
  Receipt Date: 20160721
  Transmission Date: 20161109
  Serious: Yes (Hospitalization)
  Sender: FDA-Public Use
  Company Number: CN-SA-2016SA129509

PATIENT
  Age: 63 Year
  Sex: Male
  Weight: 63 kg

DRUGS (2)
  1. CLEXANE [Suspect]
     Active Substance: ENOXAPARIN SODIUM
     Indication: COAGULOPATHY
     Route: 058
     Dates: start: 20160104, end: 20160114
  2. ALPROSTADIL. [Concomitant]
     Active Substance: ALPROSTADIL
     Indication: COAGULOPATHY
     Dosage: DOSE: 10 UG
     Route: 041
     Dates: start: 20160104, end: 20160114

REACTIONS (2)
  - Prothrombin time prolonged [Recovering/Resolving]
  - Petechiae [Recovering/Resolving]

NARRATIVE: CASE EVENT DATE: 20160113
